FAERS Safety Report 16756846 (Version 4)
Quarter: 2020Q2

REPORT INFORMATION
  Report Type: Spontaneous
  Country: US (occurrence: US)
  Receive Date: 20190829
  Receipt Date: 20200515
  Transmission Date: 20200713
  Serious: Yes (Hospitalization)
  Sender: FDA-Public Use
  Company Number: US-JNJFOC-20190832883

PATIENT
  Age: 12 Year
  Sex: Female
  Weight: 65.83 kg

DRUGS (2)
  1. REMICADE [Suspect]
     Active Substance: INFLIXIMAB
     Indication: CROHN^S DISEASE
     Route: 042
     Dates: start: 200701, end: 20180601
  2. CETRIZINE [Concomitant]
     Active Substance: CETIRIZINE HYDROCHLORIDE
     Indication: SEASONAL ALLERGY
     Route: 065
     Dates: start: 200806

REACTIONS (11)
  - Conjunctivitis [Unknown]
  - Sinusitis [Unknown]
  - Skin infection [Unknown]
  - Tinea pedis [Recovered/Resolved]
  - Hidradenitis [Unknown]
  - Oral fungal infection [Unknown]
  - Cellulitis [Unknown]
  - Impetigo [Unknown]
  - Psoriasis [Unknown]
  - Vulvovaginal mycotic infection [Unknown]
  - Varicella [Unknown]

NARRATIVE: CASE EVENT DATE: 201009
